FAERS Safety Report 6971989-1 (Version None)
Quarter: 2010Q3

REPORT INFORMATION
  Report Type: 
  Country: None (occurrence: None)
  Receive Date: 20100908
  Receipt Date: 20100908
  Transmission Date: 20110219
  Serious: Yes (Other)
  Sender: FDA-Public Use
  Company Number: None

PATIENT
  Sex: Female

DRUGS (2)
  1. TOPAMAX [Suspect]
     Indication: EPILEPSY
     Dosage: 200 MG PO BID
     Route: 048
     Dates: start: 20100518
  2. TOPAMAX [Suspect]
     Indication: MIGRAINE
     Dosage: 200 MG PO BID
     Route: 048
     Dates: start: 20100518

REACTIONS (4)
  - AURA [None]
  - CONVULSION [None]
  - MIGRAINE [None]
  - PRODUCT SUBSTITUTION ISSUE [None]
